FAERS Safety Report 8473390-0 (Version None)
Quarter: 2012Q2

REPORT INFORMATION
  Report Type: 
  Country: None (occurrence: None)
  Receive Date: 20120628
  Receipt Date: 20120619
  Transmission Date: 20120825
  Serious: No
  Sender: FDA-Public Use
  Company Number: US-BIOGENIDEC-2012BI021893

PATIENT
  Sex: Female

DRUGS (1)
  1. AVONEX [Suspect]
     Indication: MULTIPLE SCLEROSIS
     Route: 030
     Dates: start: 20091228

REACTIONS (8)
  - FATIGUE [None]
  - DYSPHONIA [None]
  - CAROTID ARTERY STENOSIS [None]
  - HYPOTHYROIDISM [None]
  - NAUSEA [None]
  - WEIGHT INCREASED [None]
  - GASTROOESOPHAGEAL REFLUX DISEASE [None]
  - DYSPEPSIA [None]
